FAERS Safety Report 9128488 (Version 1)
Quarter: 2013Q1

REPORT INFORMATION
  Report Type: Report from Study
  Country: ES (occurrence: ES)
  Receive Date: 20130125
  Receipt Date: 20130125
  Transmission Date: 20140127
  Serious: Yes (Death, Hospitalization)
  Sender: FDA-Public Use
  Company Number: ES-PFIZER INC-2013025599

PATIENT
  Age: 67 Year
  Sex: Male
  Weight: 72 kg

DRUGS (5)
  1. IRINOTECAN HCL [Suspect]
     Indication: COLORECTAL CANCER METASTATIC
     Dosage: 350 MG INFUSION ONCE EVERY 21 DAYS
     Route: 042
     Dates: start: 20091228, end: 20100110
  2. CAPECITABINE [Suspect]
     Indication: COLORECTAL CANCER METASTATIC
     Dosage: 3000 MG TABLETS EVERY 21 DAYS ON DAY 1-14
     Route: 048
     Dates: start: 20091228, end: 20091231
  3. DIUZINE [Concomitant]
     Dosage: 0.5 DF, UNK
     Dates: end: 20100110
  4. ATROVENT [Concomitant]
     Dosage: 20 UG, UNK
     Dates: end: 20100110
  5. SERETIDE [Concomitant]
     Dosage: UNK

REACTIONS (4)
  - Prerenal failure [Fatal]
  - Dehydration [Not Recovered/Not Resolved]
  - Diarrhoea [Not Recovered/Not Resolved]
  - Vomiting [Not Recovered/Not Resolved]
